FAERS Safety Report 4664077-0 (Version None)
Quarter: 2005Q2

REPORT INFORMATION
  Report Type: 
  Country: None (occurrence: None)
  Receive Date: 20050516
  Receipt Date: 20050516
  Transmission Date: 20051028
  Serious: No
  Sender: FDA-Public Use
  Company Number: None

PATIENT
  Age: 62 Year
  Sex: Male
  Weight: 93.8946 kg

DRUGS (1)
  1. NARDIL [Suspect]
     Indication: MAJOR DEPRESSION
     Dosage: 4/DAY
     Dates: start: 19850810, end: 20050514

REACTIONS (3)
  - ANXIETY [None]
  - DEPRESSION [None]
  - PHARMACEUTICAL PRODUCT COMPLAINT [None]
